FAERS Safety Report 23290998 (Version 1)
Quarter: 2023Q4

REPORT INFORMATION
  Report Type: Spontaneous
  Country: US (occurrence: GB)
  Receive Date: 20231213
  Receipt Date: 20231213
  Transmission Date: 20240110
  Serious: No
  Sender: FDA-Public Use
  Company Number: US-ALVOGEN-2023089455

PATIENT
  Sex: Female

DRUGS (1)
  1. FENTANYL [Suspect]
     Active Substance: FENTANYL\FENTANYL CITRATE
     Indication: Product used for unknown indication
     Dosage: EXPIRATION DATE: UU-MAY-2025. ?STRENGTH: 25 MCG/HR?MANUFACTURING DATE: 10-MAY-2023

REACTIONS (2)
  - Device adhesion issue [Unknown]
  - Device malfunction [Unknown]
